FAERS Safety Report 9154514 (Version 1)
Quarter: 2013Q1

REPORT INFORMATION
  Report Type: Spontaneous
  Country: US (occurrence: US)
  Receive Date: 20130311
  Receipt Date: 20130311
  Transmission Date: 20140127
  Serious: No
  Sender: FDA-Public Use
  Company Number: US-ABBOTT-12P-163-0958495-00

PATIENT
  Sex: Female
  Weight: 49.94 kg

DRUGS (2)
  1. LUPRON DEPOT 11.25 MG [Suspect]
     Indication: ENDOMETRIOSIS
     Route: 030
     Dates: start: 201109, end: 20120330
  2. LUPRON DEPOT 11.25 MG [Suspect]
     Indication: UTERINE LEIOMYOMA

REACTIONS (2)
  - Menorrhagia [Not Recovered/Not Resolved]
  - Menorrhagia [Not Recovered/Not Resolved]
